FAERS Safety Report 22661831 (Version 5)
Quarter: 2024Q4

REPORT INFORMATION
  Report Type: Report from Study
  Country: US (occurrence: US)
  Receive Date: 20230630
  Receipt Date: 20241017
  Transmission Date: 20250114
  Serious: Yes (Hospitalization)
  Sender: ROCHE
  Company Number: US-ROCHE-3377408

PATIENT
  Age: 66 Year
  Sex: Female
  Weight: 40.37 kg

DRUGS (6)
  1. OCREVUS [Suspect]
     Active Substance: OCRELIZUMAB
     Indication: Relapsing-remitting multiple sclerosis
     Dosage: STARTED ABOUT 3 YEARS AGOP. DATE OF TREATMENT:  16/JUN/2022, 12/MAY/2022, 23/JUN/2023
     Route: 042
  2. OCREVUS [Suspect]
     Active Substance: OCRELIZUMAB
     Indication: Primary progressive multiple sclerosis
     Route: 042
     Dates: start: 20211214, end: 20230623
  3. CEPHALEXIN [Concomitant]
     Active Substance: CEPHALEXIN
     Dosage: STARTED WHEN SHE HAD THE INFECTION IN THE HOSPITAL ABOUT 3 YEARS AGO.
     Route: 048
  4. AMPYRA [Concomitant]
     Active Substance: DALFAMPRIDINE
  5. METHADONE [Concomitant]
     Active Substance: METHADONE HYDROCHLORIDE
  6. STIOLTO RESPIMAT [Concomitant]
     Active Substance: OLODATEROL HYDROCHLORIDE\TIOTROPIUM BROMIDE MONOHYDRATE
     Route: 055

REACTIONS (6)
  - Infection [Not Recovered/Not Resolved]
  - Chronic obstructive pulmonary disease [Not Recovered/Not Resolved]
  - Malnutrition [Not Recovered/Not Resolved]
  - Weight decreased [Not Recovered/Not Resolved]
  - Irritability [Not Recovered/Not Resolved]
  - Product dose omission issue [Unknown]

NARRATIVE: CASE EVENT DATE: 20230101
